FAERS Safety Report 5326591-4 (Version None)
Quarter: 2007Q2

REPORT INFORMATION
  Report Type: 
  Country: None (occurrence: None)
  Receive Date: 20070516
  Receipt Date: 20070509
  Transmission Date: 20071010
  Serious: Yes (Other)
  Sender: FDA-Public Use
  Company Number: JP-SANOFI-SYNTHELABO-F01200700614

PATIENT
  Sex: Female
  Weight: 70 kg

DRUGS (5)
  1. DIOVAN [Concomitant]
     Indication: HYPERTENSION
     Route: 048
     Dates: start: 20050803
  2. AMLODIN [Concomitant]
     Indication: HYPERTENSION
     Route: 048
     Dates: start: 20050803
  3. MAINTATE [Concomitant]
     Indication: HYPERTENSION
     Route: 048
     Dates: start: 19950501
  4. WARFARIN SODIUM [Concomitant]
     Indication: ANTIPLATELET THERAPY
     Dosage: UNK
     Route: 048
     Dates: start: 20050803, end: 20061030
  5. CLOPIDOGREL [Suspect]
     Indication: LACUNAR INFARCTION
     Route: 048
     Dates: start: 20061031, end: 20061120

REACTIONS (1)
  - ASTHMA [None]
